FAERS Safety Report 9237356 (Version 9)
Quarter: 2015Q1

REPORT INFORMATION
  Report Type: Spontaneous
  Country: JP (occurrence: JP)
  Receive Date: 20130417
  Receipt Date: 20150216
  Transmission Date: 20150721
  Serious: Yes (Hospitalization)
  Sender: FDA-Public Use
  Company Number: JP-009507513-1304JPN007484

PATIENT
  Age: 78 Year
  Sex: Male
  Weight: 63 kg

DRUGS (12)
  1. JANUVIA [Suspect]
     Active Substance: SITAGLIPTIN PHOSPHATE
     Indication: TYPE 2 DIABETES MELLITUS
     Dosage: 50 MG, QD
     Route: 048
  2. NU-LOTAN TABLETS 50MG [Concomitant]
     Active Substance: LOSARTAN
     Indication: HYPERTENSION
     Dosage: 50 MG, QD
     Route: 048
  3. JANUVIA [Suspect]
     Active Substance: SITAGLIPTIN PHOSPHATE
     Dosage: 100 MG, QD
     Route: 048
  4. METGLUCO [Concomitant]
     Active Substance: METFORMIN HYDROCHLORIDE
     Indication: TYPE 2 DIABETES MELLITUS
     Dosage: 250 MG, BID
     Route: 048
  5. GLIMICRON [Concomitant]
     Active Substance: GLICLAZIDE
     Indication: TYPE 2 DIABETES MELLITUS
     Dosage: 10 MG, QD
     Route: 048
     Dates: start: 201301
  6. MEVALOTIN [Concomitant]
     Active Substance: PRAVASTATIN SODIUM
     Indication: DYSLIPIDAEMIA
     Dosage: 5 MG, QD
     Route: 048
  7. METHYCOBAL [Concomitant]
     Active Substance: METHYLCOBALAMIN
     Dosage: 500 MICROGRAM, TID
     Route: 048
  8. BUFORMIN HYDROCHLORIDE [Concomitant]
     Active Substance: BUFORMIN HYDROCHLORIDE
     Indication: TYPE 2 DIABETES MELLITUS
     Dosage: 150 MG, QD (DIVIDED DOSES FREQUENCY UNKNOWN); TOTAL DAILY DOSE: 150 MG
     Route: 048
  9. ATELEC [Concomitant]
     Active Substance: CILNIDIPINE
     Indication: HYPERTENSION
     Dosage: 2.5 MG, BID
     Route: 048
  10. NEWTOLIDE [Concomitant]
     Active Substance: HYDROCHLOROTHIAZIDE
     Indication: HYPERTENSION
     Dosage: 1.25 MG, QD
     Route: 048
  11. PIOGLITAZONE HYDROCHLORIDE. [Concomitant]
     Active Substance: PIOGLITAZONE HYDROCHLORIDE
     Indication: TYPE 2 DIABETES MELLITUS
  12. LYRICA [Concomitant]
     Active Substance: PREGABALIN
     Dosage: 25 MG, QD
     Route: 048

REACTIONS (2)
  - Glycosylated haemoglobin increased [Recovered/Resolved]
  - Seronegative arthritis [Recovered/Resolved]
